FAERS Safety Report 24892402 (Version 1)
Quarter: 2025Q1

REPORT INFORMATION
  Report Type: Spontaneous
  Country: US (occurrence: US)
  Receive Date: 20250128
  Receipt Date: 20250128
  Transmission Date: 20250409
  Serious: No
  Sender: IBSA INSTITUT BIOCHIMIQUE
  Company Number: US-IBSA PHARMA INC.-2024IBS000199

PATIENT

DRUGS (2)
  1. LICART [Suspect]
     Active Substance: DICLOFENAC EPOLAMINE
     Indication: Pain
     Dosage: 1 PATCH, QD AS NEEDED
     Route: 061
  2. LICART [Suspect]
     Active Substance: DICLOFENAC EPOLAMINE
     Indication: Inflammation

REACTIONS (1)
  - Drug ineffective [Unknown]
